FAERS Safety Report 17306407 (Version 1)
Quarter: 2020Q1

REPORT INFORMATION
  Report Type: Spontaneous
  Country: US (occurrence: US)
  Receive Date: 20200106
  Receipt Date: 20200106
  Transmission Date: 20200409
  Serious: No
  Sender: FDA-Public Use
  Company Number: None

PATIENT
  Age: 69 Year
  Sex: Male
  Weight: 97.98 kg

DRUGS (2)
  1. NOVOLOG [Suspect]
     Active Substance: INSULIN ASPART
     Route: 058
  2. INSULIN (INSULIN ,GLARGINE, HUM AN 100 IUNIT/ML INJ, SOLOSTAR, 3ML) [Suspect]
     Active Substance: INSULIN GLARGINE
     Indication: DIABETES MELLITUS
     Route: 058
     Dates: start: 20181206

REACTIONS (5)
  - Tremor [None]
  - Confusional state [None]
  - Vision blurred [None]
  - Hypoglycaemia [None]
  - Loss of consciousness [None]

NARRATIVE: CASE EVENT DATE: 20191206
